FAERS Safety Report 5058131-1 (Version None)
Quarter: 2006Q3

REPORT INFORMATION
  Report Type: 
  Country: None (occurrence: None)
  Receive Date: 20060721
  Receipt Date: 20060713
  Transmission Date: 20061208
  Serious: Yes (Hospitalization)
  Sender: FDA-Public Use
  Company Number: J200602315

PATIENT
  Age: 56 Year
  Sex: Female

DRUGS (5)
  1. SAWACILLIN [Suspect]
     Indication: GASTRIC ULCER HELICOBACTER
     Dosage: 750MG TWICE PER DAY
     Route: 048
     Dates: start: 20050713, end: 20050719
  2. CLARITHROMYCIN [Suspect]
     Indication: GASTRIC ULCER HELICOBACTER
     Dosage: 400MG TWICE PER DAY
     Route: 048
     Dates: start: 20050713, end: 20050719
  3. OMEPRAZOLE [Concomitant]
     Indication: GASTRIC ULCER HELICOBACTER
     Dosage: 20MG FOUR TIMES PER DAY
     Route: 048
     Dates: start: 20050613, end: 20050722
  4. MIYA BM [Concomitant]
     Indication: GASTRIC ULCER HELICOBACTER
     Dosage: 1G TWICE PER DAY
     Route: 048
     Dates: start: 20050713, end: 20050719
  5. CLOSTRIDIUM BUTYRICUM [Concomitant]
     Indication: GASTRIC ULCER HELICOBACTER
     Dosage: 1G TWICE PER DAY
     Route: 048
     Dates: start: 20050713, end: 20050719

REACTIONS (2)
  - PRURITUS [None]
  - TOXIC SKIN ERUPTION [None]
